FAERS Safety Report 16079241 (Version 1)
Quarter: 2019Q1

REPORT INFORMATION
  Report Type: Spontaneous
  Country: FR (occurrence: FR)
  Receive Date: 20190315
  Receipt Date: 20190315
  Transmission Date: 20190418
  Serious: Yes (Hospitalization)
  Sender: FDA-Public Use
  Company Number: FR-TEVA-2019-FR-1023519

PATIENT
  Age: 77 Year
  Sex: Female

DRUGS (14)
  1. ATARAX [Concomitant]
     Active Substance: HYDROXYZINE HYDROCHLORIDE
  2. CARBOPLATINE [Suspect]
     Active Substance: CARBOPLATIN
     Dosage: THIRD TREATMENT
     Route: 042
     Dates: start: 20091207, end: 20091207
  3. SERETIDE [Concomitant]
     Active Substance: FLUTICASONE PROPIONATE\SALMETEROL XINAFOATE
  4. TRANQUITAL [Concomitant]
     Active Substance: HERBALS
  5. TENSTATEN [Concomitant]
     Active Substance: CICLETANINE HYDROCHLORIDE
  6. INEXIUM [Concomitant]
     Active Substance: ESOMEPRAZOLE
  7. KARDEGIC [Concomitant]
     Active Substance: ASPIRIN DL-LYSINE
  8. TAHOR [Concomitant]
     Active Substance: ATORVASTATIN CALCIUM
  9. TENORMINE [Concomitant]
     Active Substance: ATENOLOL
  10. HYTACAND [Concomitant]
     Active Substance: CANDESARTAN CILEXETIL\HYDROCHLOROTHIAZIDE
  11. HEXAQUINE [Concomitant]
     Active Substance: NIAOULI OIL\QUININE BENZOATE\THIAMINE HYDROCHLORIDE
  12. STILNOX [Concomitant]
     Active Substance: ZOLPIDEM TARTRATE
  13. SINGULAIR [Concomitant]
     Active Substance: MONTELUKAST SODIUM
  14. VEPESIDE [Suspect]
     Active Substance: ETOPOSIDE
     Dosage: THIRD TREATMENT
     Route: 042
     Dates: start: 20091207, end: 20091207

REACTIONS (4)
  - Altered state of consciousness [Recovered/Resolved]
  - Nausea [Recovered/Resolved]
  - Decreased appetite [Recovered/Resolved]
  - General physical health deterioration [Recovered/Resolved]

NARRATIVE: CASE EVENT DATE: 20091208
